FAERS Safety Report 4916859-5 (Version None)
Quarter: 2006Q1

REPORT INFORMATION
  Report Type: 
  Country: None (occurrence: None)
  Receive Date: 20060220
  Receipt Date: 20060123
  Transmission Date: 20060701
  Serious: Yes (Hospitalization)
  Sender: FDA-Public Use
  Company Number: ES-NOVOPROD-250274

PATIENT
  Age: 78 Year
  Sex: Female

DRUGS (7)
  1. PRANDIN [Suspect]
     Indication: DIABETES MELLITUS
     Dosage: 8 MG, QD
     Dates: start: 20051116, end: 20051228
  2. METFORMINE ^MERCK^ [Suspect]
     Indication: DIABETES MELLITUS
     Dosage: 1700 MG, QD
     Dates: start: 20051202, end: 20051228
  3. DIGOXIN [Suspect]
     Indication: CARDIAC FAILURE
     Dosage: .125 MG, QD
     Dates: start: 20050823, end: 20051228
  4. TORSEMIDE [Suspect]
     Indication: CARDIAC FAILURE
     Dosage: 10 MG, QD
     Dates: start: 20030812, end: 20051228
  5. ADIRO [Concomitant]
  6. TEPAZEPAN [Concomitant]
  7. INSULIN [Concomitant]
     Indication: DIABETES MELLITUS
     Dosage: 36 IU, UNK

REACTIONS (4)
  - BACTERAEMIA [None]
  - ESCHERICHIA URINARY TRACT INFECTION [None]
  - HEPATITIS [None]
  - SEPSIS [None]
